FAERS Safety Report 6440118-5 (Version None)
Quarter: 2009Q4

REPORT INFORMATION
  Report Type: 
  Country: None (occurrence: None)
  Receive Date: 20091113
  Receipt Date: 20081211
  Transmission Date: 20100525
  Serious: No
  Sender: FDA-Public Use
  Company Number: A0760789A

PATIENT
  Age: 60 Year
  Sex: Female
  Weight: 101.6 kg

DRUGS (28)
  1. COREG [Suspect]
     Dosage: 20MG PER DAY
     Dates: start: 20080618
  2. CHANTIX [Concomitant]
  3. FLUOXETINE [Concomitant]
  4. HYDROCODONE [Concomitant]
  5. LISINOPRIL [Concomitant]
  6. ADVAIR DISKUS 100/50 [Concomitant]
  7. LORTAB [Concomitant]
  8. DIAZEPAM [Concomitant]
  9. FUROSEMIDE [Concomitant]
  10. POTASSIUM CHLORIDE [Concomitant]
  11. LOVASTATIN [Concomitant]
  12. CLONAZEPAM [Concomitant]
  13. AMRIX [Concomitant]
  14. ALBUTEROL [Concomitant]
  15. IBUPROFEN [Concomitant]
  16. VITAMIN E [Concomitant]
  17. BLACK COHOSH [Concomitant]
  18. OXYBUTYNIN CHLORIDE [Concomitant]
  19. KETOCONAZOLE [Concomitant]
  20. NAPROXEN [Concomitant]
  21. CALCIUM [Concomitant]
  22. FLAXSEED OIL [Concomitant]
  23. VITAMIN B-12 [Concomitant]
  24. ACETAMINOPHEN WITH PROPOXYPHENE HCL TAB [Concomitant]
  25. VITAMIN D [Concomitant]
  26. OTHER MEDICATIONS [Concomitant]
  27. ACETAMINOPHEN W/ PROPOXYPHENE HCL [Concomitant]
  28. INHALER [Concomitant]

REACTIONS (2)
  - DRUG INEFFECTIVE [None]
  - MALAISE [None]
